FAERS Safety Report 17799474 (Version 8)
Quarter: 2021Q2

REPORT INFORMATION
  Report Type: Report from Study
  Country: US (occurrence: US)
  Receive Date: 20200518
  Receipt Date: 20210616
  Transmission Date: 20210716
  Serious: Yes (Other)
  Sender: FDA-Public Use
  Company Number: NVSC2020US132509

PATIENT
  Age: 65 Year
  Sex: Female
  Weight: 92 kg

DRUGS (2)
  1. ENTRESTO [Suspect]
     Active Substance: SACUBITRIL\VALSARTAN
     Dosage: 50 MG, BID (24/26) MG
     Route: 048
  2. ENTRESTO [Suspect]
     Active Substance: SACUBITRIL\VALSARTAN
     Indication: PRODUCT USED FOR UNKNOWN INDICATION
     Dosage: 100 MG, BID (49/51 MG)
     Route: 048

REACTIONS (18)
  - Gait disturbance [Unknown]
  - Condition aggravated [Unknown]
  - Asthenia [Unknown]
  - Cardiac failure congestive [Unknown]
  - Throat clearing [Not Recovered/Not Resolved]
  - Conduction disorder [Unknown]
  - Ventricular dyssynchrony [Unknown]
  - Drug ineffective [Unknown]
  - Product dose omission issue [Unknown]
  - Dizziness [Unknown]
  - Palpitations [Unknown]
  - Electrocardiogram ambulatory abnormal [Recovered/Resolved]
  - Hypotension [Unknown]
  - Exercise tolerance decreased [Unknown]
  - Depression [Recovering/Resolving]
  - Presyncope [Unknown]
  - Frustration tolerance decreased [Unknown]
  - General physical health deterioration [Unknown]

NARRATIVE: CASE EVENT DATE: 20171031
